FAERS Safety Report 8575097-8 (Version None)
Quarter: 2012Q3

REPORT INFORMATION
  Report Type: 
  Country: None (occurrence: None)
  Receive Date: 20120807
  Receipt Date: 20120727
  Transmission Date: 20120928
  Serious: Yes (Hospitalization)
  Sender: FDA-Public Use
  Company Number: BR-BAYER-2011-024580

PATIENT
  Age: 67 Year
  Sex: Male
  Weight: 62.222 kg

DRUGS (6)
  1. NEXAVAR [Suspect]
     Indication: METASTATIC RENAL CELL CARCINOMA
     Dosage: 400 MG, BID
     Route: 048
     Dates: start: 20100304
  2. BUMETANIDE [Concomitant]
     Dosage: 0.5 MG, QD
     Route: 048
  3. ATENOLOL [Concomitant]
     Dosage: 25 MG, BID
     Route: 048
     Dates: start: 20060601
  4. LEVOTHYROXINE SODIUM [Concomitant]
     Dosage: 75 MG, UNK
     Route: 048
     Dates: start: 20061201
  5. AMLODIPINE [Concomitant]
     Dosage: 25 MG, QD
     Dates: start: 20060601
  6. SPIRONOLACTONE [Concomitant]
     Dosage: 25 MG, BID
     Route: 048
     Dates: start: 20060601

REACTIONS (5)
  - LIMB DISCOMFORT [None]
  - PAIN [None]
  - ERYTHEMA [None]
  - THROMBOSIS [None]
  - OEDEMA [None]
